FAERS Safety Report 16471498 (Version 1)
Quarter: 2019Q2

REPORT INFORMATION
  Report Type: Report from Study
  Country: US (occurrence: US)
  Receive Date: 20190624
  Receipt Date: 20190624
  Transmission Date: 20190711
  Serious: Yes (Other)
  Sender: FDA-Public Use
  Company Number: PHHY2016US113083

PATIENT
  Age: 35 Year
  Sex: Female

DRUGS (2)
  1. GILENYA [Suspect]
     Active Substance: FINGOLIMOD HYDROCHLORIDE
     Indication: MULTIPLE SCLEROSIS
     Dosage: UNK, QD
     Route: 048
  2. STRATTERA [Suspect]
     Active Substance: ATOMOXETINE HYDROCHLORIDE
     Indication: DISTURBANCE IN ATTENTION
     Dosage: UNK
     Route: 065
     Dates: start: 20160701, end: 20160714

REACTIONS (10)
  - Migraine [Unknown]
  - Pharyngitis streptococcal [Unknown]
  - Fatigue [Unknown]
  - Bronchitis [Unknown]
  - Muscle spasms [Unknown]
  - Urinary tract infection [Recovered/Resolved]
  - Sinusitis [Unknown]
  - Gastroenteritis [Recovered/Resolved]
  - Tympanic membrane perforation [Recovered/Resolved]
  - Palpitations [Recovered/Resolved]

NARRATIVE: CASE EVENT DATE: 20160630
